FAERS Safety Report 14410482 (Version 2)
Quarter: 2018Q1

REPORT INFORMATION
  Report Type: Report from Study
  Country: None (occurrence: US)
  Receive Date: 20180119
  Receipt Date: 20180227
  Transmission Date: 20180509
  Serious: Yes (Hospitalization, Disabling, Other)
  Sender: FDA-Public Use
  Company Number: US-ABBVIE-18K-163-2228887-00

PATIENT
  Sex: Female

DRUGS (1)
  1. HUMIRA [Suspect]
     Active Substance: ADALIMUMAB
     Indication: PSORIASIS
     Route: 058

REACTIONS (12)
  - Bronchitis [Unknown]
  - Alopecia [Recovered/Resolved]
  - Neuropathy peripheral [Unknown]
  - Respiratory tract congestion [Unknown]
  - Injection site pain [Unknown]
  - Asthenia [Unknown]
  - Fungal skin infection [Unknown]
  - Gait inability [Unknown]
  - Tremor [Unknown]
  - Nasopharyngitis [Unknown]
  - Magnesium deficiency [Unknown]
  - Alopecia [Unknown]

NARRATIVE: CASE EVENT DATE: 2015
